FAERS Safety Report 13582929 (Version 1)
Quarter: 2017Q2

REPORT INFORMATION
  Report Type: Spontaneous
  Country: JP (occurrence: JP)
  Receive Date: 20170525
  Receipt Date: 20170525
  Transmission Date: 20170830
  Serious: Yes (Death, Other)
  Sender: FDA-Public Use
  Company Number: PHHY2017JP076715

PATIENT
  Age: 51 Year
  Sex: Male

DRUGS (9)
  1. CETUXIMAB. [Suspect]
     Active Substance: CETUXIMAB
     Dosage: CONSECUTIVE 250 MG/M2, QW
     Route: 065
  2. PANITUMUMAB [Suspect]
     Active Substance: PANITUMUMAB
     Indication: RECTAL CANCER
     Dosage: 6 MG/KG, Q2W
     Route: 042
  3. BEVACIZUMAB [Suspect]
     Active Substance: BEVACIZUMAB
     Indication: RECTAL CANCER
     Dosage: 5 MG/KG, Q2W
     Route: 042
  4. LEVOLEUCOVORIN CALCIUM. [Suspect]
     Active Substance: LEVOLEUCOVORIN CALCIUM
     Indication: RECTAL CANCER
     Dosage: 200 MG/M2 DAY 1
     Route: 042
  5. OXALIPLATIN. [Suspect]
     Active Substance: OXALIPLATIN
     Indication: RECTAL CANCER
     Dosage: 85 MG/M2, UNK
     Route: 042
  6. 5-FLUOROURACIL [Suspect]
     Active Substance: FLUOROURACIL
     Indication: RECTAL CANCER
     Dosage: 400 MG/M2, UNK
     Route: 040
  7. 5-FLUOROURACIL [Suspect]
     Active Substance: FLUOROURACIL
     Dosage: 2400 MG/M2 CONTINUOUS OVER 46 HOURS REPEATED EVERY 2 WEEKS
     Route: 042
  8. IRINOTECAN [Suspect]
     Active Substance: IRINOTECAN
     Indication: RECTAL CANCER
     Dosage: 150 MG/M2, UNK
     Route: 042
  9. CETUXIMAB. [Suspect]
     Active Substance: CETUXIMAB
     Indication: RECTAL CANCER
     Dosage: 400 MG/M2 FOR FIRST INFUSION
     Route: 042

REACTIONS (14)
  - Hypomagnesaemia [Unknown]
  - Platelet count decreased [Unknown]
  - Metastases to liver [Unknown]
  - Rash [Unknown]
  - Metastases to kidney [Fatal]
  - Neuropathy peripheral [Unknown]
  - Metastases to bone marrow [Unknown]
  - Neutrophil count decreased [Unknown]
  - Anaemia [Unknown]
  - Paronychia [Unknown]
  - Malignant neoplasm progression [Fatal]
  - Therapeutic response decreased [Unknown]
  - Leukoerythroblastosis [Unknown]
  - Fatigue [Unknown]
